FAERS Safety Report 16917726 (Version 1)
Quarter: 2019Q4

REPORT INFORMATION
  Report Type: Spontaneous
  Country: GB (occurrence: GB)
  Receive Date: 20191015
  Receipt Date: 20191015
  Transmission Date: 20200122
  Serious: Yes (Life-Threatening, Hospitalization)
  Sender: FDA-Public Use
  Company Number: GB-TEVA-2019-GB-1120409

PATIENT
  Age: 31 Year
  Sex: Male

DRUGS (2)
  1. CLOPIXOL [Suspect]
     Active Substance: ZUCLOPENTHIXOL
     Indication: PSYCHOTIC DISORDER
     Route: 051
     Dates: start: 20190701
  2. SODIUM VALPROATE [Suspect]
     Active Substance: VALPROATE SODIUM
     Indication: PSYCHOTIC DISORDER
     Route: 048
     Dates: start: 20170101

REACTIONS (4)
  - Blood sodium decreased [Recovering/Resolving]
  - Thirst [Recovering/Resolving]
  - Circulatory collapse [Recovering/Resolving]
  - Dyspnoea [Recovering/Resolving]
